FAERS Safety Report 6858012-4 (Version None)
Quarter: 2010Q2

REPORT INFORMATION
  Report Type: 
  Country: None (occurrence: None)
  Receive Date: 20100630
  Receipt Date: 20100503
  Transmission Date: 20101027
  Serious: No
  Sender: FDA-Public Use
  Company Number: 1000013620

PATIENT
  Sex: Female

DRUGS (4)
  1. BYSTOLIC [Suspect]
     Dosage: ORAL
     Route: 048
  2. MIRALAX [Suspect]
     Dosage: AS REQUIRED, ORAL
     Route: 048
  3. LISINOPRIL [Concomitant]
  4. MAXZIDE [Concomitant]

REACTIONS (1)
  - FLUID RETENTION [None]
